FAERS Safety Report 4606761-0 (Version None)
Quarter: 2005Q1

REPORT INFORMATION
  Report Type: 
  Country: None (occurrence: None)
  Receive Date: 20050310
  Receipt Date: 20050225
  Transmission Date: 20050727
  Serious: Yes (Hospitalization)
  Sender: FDA-Public Use
  Company Number: 200502IM000042

PATIENT
  Age: 78 Year
  Sex: Male
  Weight: 84.369 kg

DRUGS (4)
  1. ACTIMMUNE [Suspect]
     Indication: PULMONARY FIBROSIS
     Dosage: UG, TIW, SUBCUTANEOUS
     Route: 058
     Dates: start: 20020801, end: 20050224
  2. TAMBOCOR [Concomitant]
  3. CALAN [Concomitant]
  4. ASPIRIN [Concomitant]

REACTIONS (2)
  - APHAGIA [None]
  - TRANSIENT ISCHAEMIC ATTACK [None]
